FAERS Safety Report 11863596 (Version 1)
Quarter: 2015Q4

REPORT INFORMATION
  Report Type: Spontaneous
  Country: FR (occurrence: FR)
  Receive Date: 20151223
  Receipt Date: 20151223
  Transmission Date: 20160305
  Serious: Yes (Life-Threatening, Hospitalization, Disabling)
  Sender: FDA-Public Use
  Company Number: PHHY2015FR167883

PATIENT
  Sex: Female

DRUGS (1)
  1. DESERNIL [Suspect]
     Active Substance: METHYSERGIDE MALEATE
     Indication: MIGRAINE PROPHYLAXIS
     Dosage: UNK
     Route: 048
     Dates: end: 2003

REACTIONS (5)
  - Cardiac valve disease [Not Recovered/Not Resolved]
  - Mitral valve disease [Not Recovered/Not Resolved]
  - Tricuspid valve disease [Not Recovered/Not Resolved]
  - Right ventricular failure [Not Recovered/Not Resolved]
  - Heart valve replacement [Not Recovered/Not Resolved]
